FAERS Safety Report 9802937 (Version 1)
Quarter: 2014Q1

REPORT INFORMATION
  Report Type: Spontaneous
  Country: FR (occurrence: FR)
  Receive Date: 20140108
  Receipt Date: 20140108
  Transmission Date: 20141002
  Serious: Yes (Hospitalization)
  Sender: FDA-Public Use
  Company Number: FR-BAYER-2014-001853

PATIENT
  Age: 70 Year
  Sex: Male

DRUGS (2)
  1. CIFLOX [Suspect]
     Route: 042
  2. BRISTOPEN [Suspect]
     Dosage: UNK
     Route: 042
     Dates: start: 20131123, end: 20131126

REACTIONS (2)
  - Lymphangitis [Recovered/Resolved]
  - Injection site joint inflammation [Recovered/Resolved]
